FAERS Safety Report 9796040 (Version 1)
Quarter: 2014Q1

REPORT INFORMATION
  Report Type: Spontaneous
  Country: DE (occurrence: DE)
  Receive Date: 20140103
  Receipt Date: 20140103
  Transmission Date: 20141002
  Serious: Yes (Other)
  Sender: FDA-Public Use
  Company Number: DE-WATSON-2013-23727

PATIENT
  Sex: Female

DRUGS (1)
  1. MECAIN-ACTAVIS [Suspect]
     Indication: CAESAREAN SECTION
     Dosage: 80 MG, SINGLE
     Route: 050

REACTIONS (2)
  - Drug ineffective [Unknown]
  - Exposure during pregnancy [Unknown]
